FAERS Safety Report 8217753-7 (Version None)
Quarter: 2012Q1

REPORT INFORMATION
  Report Type: 
  Country: None (occurrence: None)
  Receive Date: 20120319
  Receipt Date: 20120312
  Transmission Date: 20120608
  Serious: Yes (Other)
  Sender: FDA-Public Use
  Company Number: US-JNJFOC-20120306365

PATIENT
  Age: 29 Year
  Sex: Male

DRUGS (3)
  1. NUCYNTA [Suspect]
     Indication: BACK PAIN
     Dosage: FOUR TIMES A DAY PLUS ONE A DAY FOR BREAKTHROUGH PAIN
     Route: 048
     Dates: start: 20120301, end: 20120301
  2. NUCYNTA [Suspect]
     Dosage: THRICE DAILY
     Route: 048
     Dates: start: 20120301, end: 20120301
  3. OXYCODONE HCL [Suspect]
     Indication: BACK PAIN
     Dosage: THRICE DAILY
     Route: 048
     Dates: start: 20100101

REACTIONS (3)
  - HALLUCINATION, VISUAL [None]
  - BREAKTHROUGH PAIN [None]
  - HALLUCINATION, AUDITORY [None]
